FAERS Safety Report 6896808-3 (Version None)
Quarter: 2010Q3

REPORT INFORMATION
  Report Type: 
  Country: None (occurrence: None)
  Receive Date: 20100802
  Receipt Date: 20070129
  Transmission Date: 20110219
  Serious: No
  Sender: FDA-Public Use
  Company Number: US-PFIZER INC-2006155545

PATIENT
  Age: 56 Year
  Sex: Female
  Weight: 56.25 kg

DRUGS (2)
  1. LYRICA [Suspect]
     Indication: ORAL DISCOMFORT
     Dates: start: 20060201, end: 20070114
  2. MINOCYCLINE HCL [Concomitant]

REACTIONS (12)
  - DRUG WITHDRAWAL SYNDROME [None]
  - FATIGUE [None]
  - INSOMNIA [None]
  - JOINT SWELLING [None]
  - MALAISE [None]
  - MUSCLE SPASMS [None]
  - MUSCLE TWITCHING [None]
  - MYALGIA [None]
  - PARAESTHESIA [None]
  - SOMNOLENCE [None]
  - TREMOR [None]
  - VISION BLURRED [None]
